FAERS Safety Report 4417060-4 (Version None)
Quarter: 2004Q2

REPORT INFORMATION
  Report Type: 
  Country: None (occurrence: None)
  Receive Date: 20040629
  Receipt Date: 20040408
  Transmission Date: 20050107
  Serious: No
  Sender: FDA-Public Use
  Company Number: US073617

PATIENT
  Age: 84 Year
  Sex: Male

DRUGS (8)
  1. ARANESP [Suspect]
     Indication: RENAL FAILURE CHRONIC
     Dates: start: 20031223, end: 20040126
  2. PIOGLITAZONE HCL [Concomitant]
  3. GLYBURIDE [Concomitant]
  4. SIMVASTATIN [Concomitant]
  5. HYDROCHLOROTHIAZIDE [Concomitant]
  6. CLONZAEPAM [Concomitant]
  7. INSULIN ZINC SUSPENSION [Concomitant]
  8. INSULIN HUMAN INJECTION [Concomitant]

REACTIONS (1)
  - HYPOGLYCAEMIC SEIZURE [None]
